FAERS Safety Report 6611228-4 (Version None)
Quarter: 2010Q1

REPORT INFORMATION
  Report Type: 
  Country: None (occurrence: None)
  Receive Date: 20100303
  Receipt Date: 20100216
  Transmission Date: 20100710
  Serious: Yes (Hospitalization, Other)
  Sender: FDA-Public Use
  Company Number: US-ELI_LILLY_AND_COMPANY-US201002005110

PATIENT
  Sex: Female

DRUGS (2)
  1. FORTEO [Suspect]
     Indication: OSTEOPOROSIS
     Dosage: 20 UG, DAILY (1/D)
     Dates: start: 20090710
  2. ASPIRIN [Concomitant]
     Dosage: UNK, DAILY (1/D)

REACTIONS (5)
  - CHOLELITHIASIS [None]
  - DYSPNOEA [None]
  - GALLBLADDER OBSTRUCTION [None]
  - GASTRECTOMY [None]
  - INTESTINAL RESECTION [None]
